FAERS Safety Report 7794904-X (Version None)
Quarter: 2011Q4

REPORT INFORMATION
  Report Type: 
  Country: None (occurrence: None)
  Receive Date: 20111004
  Receipt Date: 20110927
  Transmission Date: 20120403
  Serious: Yes (Other)
  Sender: FDA-Public Use
  Company Number: PHHY2011DE85869

PATIENT
  Sex: Female

DRUGS (1)
  1. FEMARA [Suspect]
     Indication: BREAST CANCER
     Dosage: 2.5 MG, PER DAY
     Route: 048
     Dates: start: 19980101

REACTIONS (3)
  - METASTASIS [None]
  - VULVOVAGINAL DRYNESS [None]
  - HOT FLUSH [None]
